FAERS Safety Report 7961257-3 (Version None)
Quarter: 2011Q4

REPORT INFORMATION
  Report Type: 
  Country: None (occurrence: None)
  Receive Date: 20111202
  Receipt Date: 20111122
  Transmission Date: 20120403
  Serious: Yes (Disabling, Other)
  Sender: FDA-Public Use
  Company Number: 2011110145

PATIENT
  Sex: Female
  Weight: 65.7716 kg

DRUGS (7)
  1. ATIVAN [Concomitant]
  2. METHADONE HYDROCHLORIDE(METHADONE) [Concomitant]
  3. SOMA [Suspect]
     Indication: FIBROMYALGIA
  4. XANAX [Suspect]
     Indication: ANXIETY DISORDER
     Dosage: 1.5 MG (0.5 MG,3 IN 1 D) ; 3 MG (1 MG,3 IN 1 D) ORAL
     Route: 048
     Dates: start: 19830101
  5. XANAX [Suspect]
     Indication: PANIC ATTACK
     Dosage: 1.5 MG (0.5 MG,3 IN 1 D) ; 3 MG (1 MG,3 IN 1 D) ORAL
     Route: 048
     Dates: start: 19830101
  6. NEURONTIN [Suspect]
     Indication: TRIGEMINAL NEURALGIA
     Dosage: 50 MG (50 MG,1 IN 1 D),ORAL
     Route: 048
     Dates: start: 19980101, end: 19980101
  7. BUSPAR [Concomitant]

REACTIONS (2)
  - NEURALGIA [None]
  - TRANSIENT ISCHAEMIC ATTACK [None]
